FAERS Safety Report 5031195-7 (Version None)
Quarter: 2006Q2

REPORT INFORMATION
  Report Type: 
  Country: None (occurrence: None)
  Receive Date: 20060621
  Receipt Date: 20060227
  Transmission Date: 20061013
  Serious: No
  Sender: FDA-Public Use
  Company Number: US-GLAXOSMITHKLINE-A0595355A

PATIENT
  Age: 68 Year
  Sex: Male

DRUGS (9)
  1. AVANDARYL [Suspect]
     Dosage: 1TAB PER DAY
     Route: 048
     Dates: start: 20060209
  2. PAXIL CR [Concomitant]
  3. LIPITOR [Concomitant]
  4. LISINOPRIL [Concomitant]
  5. ASPIRIN [Concomitant]
  6. FISH OIL [Concomitant]
  7. CALCIUM/VITAMIN D [Concomitant]
  8. UNKNOWN MEDICATION [Concomitant]
  9. ESTER C [Concomitant]

REACTIONS (1)
  - CONSTIPATION [None]
